FAERS Safety Report 15083874 (Version 1)
Quarter: 2018Q2

REPORT INFORMATION
  Report Type: Report from Study
  Country: GB (occurrence: GB)
  Receive Date: 20180628
  Receipt Date: 20180628
  Transmission Date: 20180711
  Serious: Yes (Hospitalization, Other)
  Sender: FDA-Public Use
  Company Number: GB-JNJFOC-20180420762

PATIENT
  Age: 75 Year
  Sex: Female

DRUGS (10)
  1. OMERAZOLE [Concomitant]
     Active Substance: OMEPRAZOLE
     Dosage: QUANTITY: 56CAPSULES
     Route: 065
  2. NASEPTIN [Concomitant]
     Active Substance: CHLORHEXIDINE HYDROCHLORIDE\NEOMYCIN SULFATE
     Dosage: 15 GRAM
     Route: 045
  3. GLYCERYL TRINITRATE [Concomitant]
     Active Substance: NITROGLYCERIN
     Dosage: SPRAY ONE OR TWO DOSES UNDER TONGUE AND THEN CLOSE MOUTH AS DIRECTED. 1X180 DOSE
     Route: 060
  4. CARBAMAZEPINE. [Suspect]
     Active Substance: CARBAMAZEPINE
     Indication: PRODUCT USED FOR UNKNOWN INDICATION
     Route: 065
  5. STELARA [Suspect]
     Active Substance: USTEKINUMAB
     Indication: PSORIASIS
     Dosage: 0.5 ML
     Route: 058
     Dates: start: 2014
  6. IRON [Suspect]
     Active Substance: IRON
     Indication: PRODUCT USED FOR UNKNOWN INDICATION
     Route: 042
     Dates: start: 20180405
  7. IRON [Suspect]
     Active Substance: IRON
     Indication: PRODUCT USED FOR UNKNOWN INDICATION
     Route: 048
  8. LEVOTHYROXINE SODIUM. [Concomitant]
     Active Substance: LEVOTHYROXINE SODIUM
     Dosage: ONE TO BE TAKEN EACH MORNING BEFORE BREAKFAST??QUANTITY 56 TABLETS
     Route: 065
  9. RANITIDINE. [Concomitant]
     Active Substance: RANITIDINE
     Dosage: 10-20ML TO BE TAKEN AFTER MEALS AND AT BEDTIME. QUANTITY: 500ML
     Route: 065
  10. CHEMYDUR [Concomitant]
     Dosage: TO BE TAKEN EACH MORNING. QUANTITY: 28TABLET
     Route: 065

REACTIONS (8)
  - Drug hypersensitivity [Unknown]
  - Therapeutic response decreased [Unknown]
  - Oesophagitis [Unknown]
  - Non-alcoholic fatty liver [Unknown]
  - Chronic kidney disease [Unknown]
  - Prurigo [Unknown]
  - Infusion related reaction [Unknown]
  - Psoriasis [Unknown]

NARRATIVE: CASE EVENT DATE: 20141023
